FAERS Safety Report 6057577-2 (Version None)
Quarter: 2009Q1

REPORT INFORMATION
  Report Type: 
  Country: None (occurrence: None)
  Receive Date: 20090126
  Receipt Date: 20090115
  Transmission Date: 20090719
  Serious: Yes (Other)
  Sender: FDA-Public Use
  Company Number: 2009AP000192

PATIENT
  Age: 65 Year
  Sex: Male

DRUGS (5)
  1. CITALOPRAM HYDROBROMIDE [Suspect]
     Indication: DEPRESSED MOOD
     Dosage: 20 MG; QD;, 10 MG;
  2. CITALOPRAM HYDROBROMIDE [Suspect]
     Indication: DEPRESSION
     Dosage: 20 MG; QD;, 10 MG;
  3. ARIPIPRAZOLE [Suspect]
     Indication: PSYCHOTIC DISORDER
     Dosage: 20 MG; QD;
  4. ACETAMINOPHEN [Concomitant]
  5. OMEPRAZOLE [Concomitant]

REACTIONS (11)
  - ANXIETY [None]
  - ASTHENIA [None]
  - DECREASED APPETITE [None]
  - DEPRESSED MOOD [None]
  - DEPRESSION [None]
  - DRUG INTERACTION [None]
  - DYSURIA [None]
  - HYPERSOMNIA [None]
  - PARANOIA [None]
  - URINARY INCONTINENCE [None]
  - URINARY TRACT OBSTRUCTION [None]
